FAERS Safety Report 9168897 (Version 6)
Quarter: 2015Q3

REPORT INFORMATION
  Report Type: Spontaneous
  Country: US (occurrence: US)
  Receive Date: 20130318
  Receipt Date: 20150720
  Transmission Date: 20151125
  Serious: Yes (Death, Hospitalization, Other)
  Sender: FDA-Public Use
  Company Number: US-PFIZER INC-2013085896

PATIENT
  Age: 81 Year
  Sex: Male
  Weight: 67.12 kg

DRUGS (23)
  1. SUTENT [Suspect]
     Active Substance: SUNITINIB MALATE
     Dosage: UNK (37.5MG-50MG DAILY 4 WEEK, OFF 2)
     Route: 048
     Dates: start: 20130925, end: 20150429
  2. ZOCOR [Concomitant]
     Active Substance: SIMVASTATIN
     Dosage: UNK
  3. OCUVITE PO [Concomitant]
     Dosage: 1 DF, UNK (EVERY MORNING)
     Route: 048
  4. NORVASC [Concomitant]
     Active Substance: AMLODIPINE BESYLATE
     Dosage: 10 MG, DAILY
     Route: 048
  5. LORAZEPAM. [Concomitant]
     Active Substance: LORAZEPAM
     Dosage: UNK
  6. SUTENT [Suspect]
     Active Substance: SUNITINIB MALATE
     Dosage: 37.5 MG, DAILY
     Route: 048
     Dates: start: 20121008, end: 20130119
  7. HYDROMORPHONE [Concomitant]
     Active Substance: HYDROMORPHONE
     Dosage: UNK
  8. VITAMIN D [Concomitant]
     Active Substance: CHOLECALCIFEROL
     Dosage: 1000 IU, UNK (EVERY MORNING)
     Route: 048
  9. CIPRO [Concomitant]
     Active Substance: CIPROFLOXACIN HYDROCHLORIDE
     Dosage: 500 MG, 2X/DAY
     Route: 048
  10. MAGNESIUM OXIDE. [Concomitant]
     Active Substance: MAGNESIUM OXIDE
     Dosage: 400 MG, 2X/DAY
     Route: 048
  11. PERCOCET [Concomitant]
     Active Substance: ACETAMINOPHEN\OXYCODONE HYDROCHLORIDE
     Indication: PAIN
     Dosage: UNK (OXYCODONE HYDROCHLORIDE 10MG), (PARACETAMOL 325 MG) (EVERY EIGHT HOURS)
     Route: 048
  12. NEXIUM [Concomitant]
     Active Substance: ESOMEPRAZOLE MAGNESIUM
     Dosage: UNK
  13. SUTENT [Suspect]
     Active Substance: SUNITINIB MALATE
     Dosage: UNK (37.5MG-50MG DAILY 4 WEEK, OFF 2)
     Route: 048
     Dates: start: 20121012, end: 20130102
  14. AMOXIL [Concomitant]
     Active Substance: AMOXICILLIN
     Dosage: 500 MG, 2X/DAY
     Route: 048
  15. NAPROSYN [Concomitant]
     Active Substance: NAPROXEN
     Dosage: 500 MG, UNK
  16. ASPIRIN. [Concomitant]
     Active Substance: ASPIRIN
     Dosage: 81 MG, DAILY
     Route: 048
  17. COREG [Concomitant]
     Active Substance: CARVEDILOL
     Dosage: 25 MG, UNK
  18. SUTENT [Suspect]
     Active Substance: SUNITINIB MALATE
     Indication: PANCREATIC NEUROENDOCRINE TUMOUR METASTATIC
     Dosage: 50 MG, 1X/DAY
     Route: 048
     Dates: start: 201210, end: 20130121
  19. TUMS [Concomitant]
     Active Substance: CALCIUM CARBONATE
     Dosage: 500 MG, DAILY
     Route: 048
  20. ZAROXOLYN [Concomitant]
     Active Substance: METOLAZONE
     Indication: PERIPHERAL SWELLING
     Dosage: 5 MG, AS NEEDED (DAILY)
     Route: 048
  21. CALCIUM CITRATE + D [Concomitant]
     Dosage: UNK (CALCIUM CITRATE 500MG), (COLECALCIFEROL 400MG) (1-4 TIMES A DAY)
  22. TENEX [Concomitant]
     Active Substance: GUANFACINE HYDROCHLORIDE
     Dosage: 1 MG, UNK (AT BEDTIME)
     Route: 048
  23. NORCO [Concomitant]
     Active Substance: ACETAMINOPHEN\HYDROCODONE BITARTRATE
     Dosage: UNK (HYDROCODONE BITARTRATE 5MG), (PARACETAMOL 325MG)

REACTIONS (30)
  - Clostridium difficile colitis [Recovered/Resolved]
  - Blood magnesium decreased [Unknown]
  - Hepatic function abnormal [Unknown]
  - Septic shock [Recovered/Resolved]
  - Small intestinal obstruction [Unknown]
  - Hypotension [Unknown]
  - Death [Fatal]
  - Hypocalcaemia [Recovered/Resolved]
  - Bacteraemia [Recovered/Resolved]
  - Disease progression [Unknown]
  - Abdominal pain [Unknown]
  - Dysphagia [Recovered/Resolved]
  - Malnutrition [Recovering/Resolving]
  - Renal failure [Unknown]
  - Hypotension [Unknown]
  - Nausea [Unknown]
  - Clostridium difficile colitis [Recovered/Resolved]
  - Anaemia [Unknown]
  - Asthenia [Unknown]
  - Weight decreased [Not Recovered/Not Resolved]
  - Diarrhoea [Recovered/Resolved]
  - Candida infection [Recovered/Resolved]
  - Ascites [Unknown]
  - Performance status decreased [Unknown]
  - Constipation [Unknown]
  - Vomiting [Unknown]
  - Dehydration [Unknown]
  - Pancreatic neuroendocrine tumour metastatic [Unknown]
  - Oedema [Unknown]
  - Colitis [Unknown]

NARRATIVE: CASE EVENT DATE: 20130121
